FAERS Safety Report 8503308-3 (Version None)
Quarter: 2012Q3

REPORT INFORMATION
  Report Type: 
  Country: None (occurrence: None)
  Receive Date: 20120711
  Receipt Date: 20120705
  Transmission Date: 20120928
  Serious: No
  Sender: FDA-Public Use
  Company Number: US-PFIZER INC-2012161543

PATIENT
  Sex: Female
  Weight: 74.376 kg

DRUGS (7)
  1. CYTOMEL [Suspect]
     Indication: HYPOTHYROIDISM
     Dosage: UNK
     Route: 048
  2. AMBIEN [Suspect]
     Indication: INSOMNIA
     Dosage: UNK
  3. SONATA [Suspect]
     Indication: INSOMNIA
     Dosage: UNK
  4. ACETAMINOPHEN [Suspect]
     Indication: INSOMNIA
     Dosage: UNK
  5. LUNESTA [Suspect]
     Indication: INSOMNIA
     Dosage: UNK
  6. SYNTHROID [Suspect]
     Indication: HYPOTHYROIDISM
     Dosage: 75 UG, UNK
     Route: 048
  7. SYNTHROID [Suspect]
     Dosage: UNK
     Route: 048

REACTIONS (3)
  - BLOOD THYROID STIMULATING HORMONE INCREASED [None]
  - DRUG INEFFECTIVE [None]
  - INSOMNIA [None]
